FAERS Safety Report 7759039-0 (Version None)
Quarter: 2011Q3

REPORT INFORMATION
  Report Type: 
  Country: None (occurrence: None)
  Receive Date: 20110919
  Receipt Date: 20110912
  Transmission Date: 20111222
  Serious: Yes (Hospitalization, Disabling)
  Sender: FDA-Public Use
  Company Number: FR-B.I. PHARMACEUTICALS,INC./RIDGEFIELD-2011-FF-00836FF

PATIENT
  Sex: Female

DRUGS (13)
  1. METFORMIN HCL [Suspect]
     Dosage: 3000 MG
     Route: 048
  2. ATARAX [Suspect]
     Dosage: 25 MG
     Route: 048
  3. VICTOZA [Concomitant]
     Indication: DIABETES MELLITUS
     Dates: start: 20100101
  4. XOLAIR [Suspect]
     Dosage: 10.7143 MG
     Route: 058
     Dates: start: 20070101
  5. UMULINE [Suspect]
     Route: 058
     Dates: end: 20100901
  6. SERETIDE [Suspect]
     Route: 055
  7. PREVISCAN [Suspect]
     Dosage: 0.5 MG
     Route: 048
  8. AMINOPHYLLINE [Suspect]
     Dosage: 800 MG
     Route: 048
  9. ATROVENT [Suspect]
     Route: 055
  10. OMEPRAZOLE [Suspect]
     Dosage: 20 MG
     Route: 048
  11. PREDNISONE [Suspect]
     Dosage: 15 MG
     Route: 048
  12. BRICANYL [Suspect]
     Route: 055
  13. ACTONEL [Suspect]
     Dosage: 5 MG
     Route: 048

REACTIONS (8)
  - MITRAL VALVE INCOMPETENCE [None]
  - DYSPNOEA [None]
  - CONGESTIVE CARDIOMYOPATHY [None]
  - AORTIC VALVE INCOMPETENCE [None]
  - SENSE OF OPPRESSION [None]
  - TRICUSPID VALVE INCOMPETENCE [None]
  - EJECTION FRACTION DECREASED [None]
  - DYSPNOEA EXERTIONAL [None]
